FAERS Safety Report 9479235 (Version 2)
Quarter: 2013Q4

REPORT INFORMATION
  Report Type: Report from Study
  Country: US (occurrence: US)
  Receive Date: 20130827
  Receipt Date: 20131017
  Transmission Date: 20140711
  Serious: Yes (Life-Threatening, Hospitalization, Other)
  Sender: FDA-Public Use
  Company Number: US-VERTEX PHARMACEUTICALS INC-2013-009095

PATIENT
  Sex: Male

DRUGS (10)
  1. VX-950 (TELAPREVIR) [Suspect]
     Indication: HEPATITIS C
     Dosage: UNK
     Dates: start: 20121213, end: 20130310
  2. RIBAVIRIN [Suspect]
     Indication: HEPATITIS C
     Dosage: 200-400MG, QD
     Dates: start: 20121213, end: 20130619
  3. PEGASYS [Suspect]
     Indication: HEPATITIS C
     Dosage: 90 ?G, UNK
     Dates: start: 20121213, end: 20130619
  4. INSULIN ASPART [Concomitant]
  5. INSULIN GLARGINE [Concomitant]
  6. METHADONE [Concomitant]
  7. LISINOPRIL [Concomitant]
  8. RALTEGRAVIR [Concomitant]
  9. NORVIR [Concomitant]
  10. EPZICOM [Concomitant]

REACTIONS (3)
  - Hepatic failure [Not Recovered/Not Resolved]
  - Renal failure [Not Recovered/Not Resolved]
  - Off label use [Unknown]
